FAERS Safety Report 6081766-4 (Version None)
Quarter: 2009Q1

REPORT INFORMATION
  Report Type: 
  Country: None (occurrence: None)
  Receive Date: 20090213
  Receipt Date: 20090204
  Transmission Date: 20090719
  Serious: Yes (Hospitalization)
  Sender: FDA-Public Use
  Company Number: DSA_33168_2009

PATIENT
  Age: 80 Year
  Sex: Female

DRUGS (4)
  1. ENALAPRIL MALEATE [Suspect]
     Indication: HYPERTENSION
     Dosage: (20 MG QD ORAL)
     Route: 048
     Dates: end: 20080902
  2. ALLOPURINOL [Suspect]
     Indication: GOUT
     Dosage: (DF ORAL)
     Route: 048
     Dates: end: 20080902
  3. CELIPROLOL HCL PCH [Concomitant]
  4. DIOSMIN [Concomitant]

REACTIONS (7)
  - GENERAL PHYSICAL HEALTH DETERIORATION [None]
  - HAEMOGLOBIN DECREASED [None]
  - ILL-DEFINED DISORDER [None]
  - LEUKOPENIA [None]
  - MYOCARDIAL ISCHAEMIA [None]
  - NEUTROPENIA [None]
  - RED BLOOD CELL COUNT DECREASED [None]
